FAERS Safety Report 8045479-1 (Version None)
Quarter: 2012Q1

REPORT INFORMATION
  Report Type: 
  Country: None (occurrence: None)
  Receive Date: 20120113
  Receipt Date: 20120104
  Transmission Date: 20120608
  Serious: Yes (Hospitalization)
  Sender: FDA-Public Use
  Company Number: CA-JNJFOC-20120104634

PATIENT
  Sex: Female
  Weight: 80 kg

DRUGS (3)
  1. CALCIUM+VITAMIN D [Concomitant]
     Route: 065
  2. REMICADE [Suspect]
     Indication: CROHN'S DISEASE
     Route: 042
     Dates: start: 20101006
  3. ALESSE [Concomitant]
     Route: 065

REACTIONS (1)
  - LACERATION [None]
